FAERS Safety Report 10422194 (Version 1)
Quarter: 2014Q3

REPORT INFORMATION
  Report Type: Spontaneous
  Country: US (occurrence: US)
  Receive Date: 20140901
  Receipt Date: 20140901
  Transmission Date: 20150326
  Serious: No
  Sender: FDA-Public Use
  Company Number: US-PFIZER INC-2014241140

PATIENT

DRUGS (1)
  1. GABAPENTIN. [Suspect]
     Active Substance: GABAPENTIN
     Indication: HERPES ZOSTER
     Dosage: UNK

REACTIONS (5)
  - Fall [Recovered/Resolved]
  - Arthralgia [Unknown]
  - Dysstasia [Unknown]
  - Coordination abnormal [Recovered/Resolved]
  - Joint swelling [Not Recovered/Not Resolved]
